FAERS Safety Report 12899841 (Version 1)
Quarter: 2016Q4

REPORT INFORMATION
  Report Type: Spontaneous
  Country: FR (occurrence: FR)
  Receive Date: 20161101
  Receipt Date: 20161101
  Transmission Date: 20170207
  Serious: Yes (Other)
  Sender: FDA-Public Use
  Company Number: FR-PFIZER INC-2016495891

PATIENT
  Age: 73 Year
  Sex: Male

DRUGS (16)
  1. AZANTAC [Concomitant]
     Active Substance: RANITIDINE HYDROCHLORIDE
     Indication: PREMEDICATION
     Dosage: 150 MG TWICE PER CYCLE
     Route: 042
     Dates: start: 20160429, end: 20160729
  2. VENTOLINE /00139502/ [Concomitant]
  3. KARDEGIC [Concomitant]
     Active Substance: ASPIRIN LYSINE
  4. ONBREZ BREEZHALER [Concomitant]
     Active Substance: INDACATEROL
  5. METHYLPREDNISOLONE MYLAN /00049602/ [Concomitant]
     Active Substance: METHYLPREDNISOLONE SODIUM SUCCINATE
     Indication: PREMEDICATION
     Dosage: 40 MG, 2 COURSES
     Route: 042
     Dates: start: 20160429, end: 20160729
  6. SOLUPRED /00016217/ [Concomitant]
     Active Substance: PREDNISOLONE
  7. RAMIPRIL. [Concomitant]
     Active Substance: RAMIPRIL
  8. POLARAMINE [Concomitant]
     Active Substance: DEXCHLORPHENIRAMINE MALEATE
     Indication: PREMEDICATION
     Dosage: 5 MG TWICE PER CYCLE
     Route: 042
     Dates: start: 20160429, end: 20160729
  9. PRIMPERAN [Concomitant]
     Active Substance: METOCLOPRAMIDE HYDROCHLORIDE
  10. LASILIX /00032601/ [Concomitant]
     Active Substance: FUROSEMIDE
  11. GRANOCYTE [Concomitant]
     Active Substance: LENOGRASTIM
  12. DOCETAXEL. [Suspect]
     Active Substance: DOCETAXEL
     Indication: PROSTATE CANCER METASTATIC
     Dosage: 100 MG TWICE PER CYCLE
     Route: 042
     Dates: start: 20160429, end: 20160729
  13. DECAPEPTYL /00975903/ [Concomitant]
     Active Substance: TRIPTORELIN PAMOATE
     Dosage: UNK
  14. XGEVA [Concomitant]
     Active Substance: DENOSUMAB
  15. CACIT VITAMINE D3 [Concomitant]
     Active Substance: CALCIUM CARBONATE\CHOLECALCIFEROL
  16. CORDARONE [Concomitant]
     Active Substance: AMIODARONE HYDROCHLORIDE

REACTIONS (4)
  - Onycholysis [Not Recovered/Not Resolved]
  - Stasis dermatitis [Not Recovered/Not Resolved]
  - Paronychia [Not Recovered/Not Resolved]
  - Onychomadesis [Not Recovered/Not Resolved]

NARRATIVE: CASE EVENT DATE: 20160610
